FAERS Safety Report 4382249-X (Version None)
Quarter: 2004Q2

REPORT INFORMATION
  Report Type: 
  Country: None (occurrence: None)
  Receive Date: 20040616
  Receipt Date: 20040528
  Transmission Date: 20050107
  Serious: Yes (Hospitalization)
  Sender: FDA-Public Use
  Company Number: F01200400091

PATIENT
  Age: 67 Year
  Sex: Male

DRUGS (9)
  1. (OXALIPLATIN) - SOLUTION - 206 MG [Suspect]
     Indication: COLORECTAL CANCER METASTATIC
     Dosage: 206 MG Q3W; INTRAVENOUS NOS
     Route: 042
     Dates: start: 20040106, end: 20040106
  2. (CAPECITABINE) - TABLET - 1650 MG [Suspect]
     Dosage: 1650 MG TWICE DAILY FROM D1 TO D14; ORAL
     Route: 048
     Dates: start: 20040106
  3. MORPHINE SULFATE [Concomitant]
  4. SENNOSIDE (SENNA) [Concomitant]
  5. MULTI-VITAMINS [Concomitant]
  6. LACTULOSE [Concomitant]
  7. DOLOGESIC (ACETAMINOPHEN+PROPROXYPHENE NAPSYLATE) [Concomitant]
  8. NYSTATIN [Concomitant]
  9. DOMPERIDONE [Concomitant]

REACTIONS (14)
  - ABDOMINAL PAIN [None]
  - ANOREXIA [None]
  - ASTHENIA [None]
  - CEREBRAL HAEMATOMA [None]
  - CONSTIPATION [None]
  - EYE SWELLING [None]
  - FACE INJURY [None]
  - FALL [None]
  - HEAD INJURY [None]
  - JOINT DISLOCATION [None]
  - SKIN LACERATION [None]
  - SUBDURAL HAEMATOMA [None]
  - VOMITING [None]
  - X-RAY GASTROINTESTINAL TRACT ABNORMAL [None]
